FAERS Safety Report 11826202 (Version 4)
Quarter: 2016Q4

REPORT INFORMATION
  Report Type: Report from Study
  Country: US (occurrence: US)
  Receive Date: 20151211
  Receipt Date: 20161228
  Transmission Date: 20170206
  Serious: No
  Sender: FDA-Public Use
  Company Number: PHHY2015US159937

PATIENT
  Age: 60 Year
  Sex: Female

DRUGS (1)
  1. GILENYA [Suspect]
     Active Substance: FINGOLIMOD HYDROCHLORIDE
     Indication: MULTIPLE SCLEROSIS
     Dosage: QD
     Route: 048

REACTIONS (2)
  - Skin lesion [Unknown]
  - White blood cell count decreased [Unknown]

NARRATIVE: CASE EVENT DATE: 20150311
